FAERS Safety Report 20719182 (Version 1)
Quarter: 2022Q2

REPORT INFORMATION
  Report Type: Spontaneous
  Country: US (occurrence: None)
  Receive Date: 20220415
  Receipt Date: 20220415
  Transmission Date: 20220720
  Serious: Yes (Other)
  Sender: FDA-Public Use
  Company Number: None

PATIENT
  Age: 58 Year
  Sex: Female

DRUGS (6)
  1. ENBREL [Suspect]
     Active Substance: ETANERCEPT
     Indication: Rheumatoid arthritis
     Dosage: INJECT 50MG UNDER THE SKIN (SUBCUTANEOUS INJECTION) ONCE WEEKLY?
     Route: 058
     Dates: start: 20180524
  2. CRANBERRY TAB [Concomitant]
  3. FISH OIL [Concomitant]
     Active Substance: FISH OIL
  4. IBUPROFEN [Concomitant]
     Active Substance: IBUPROFEN
  5. MULTI-VITE [Concomitant]
  6. PROBIOTICS NOS [Concomitant]
     Active Substance: PROBIOTICS NOS

REACTIONS (3)
  - Rheumatoid arthritis [None]
  - Therapy interrupted [None]
  - Pain [None]

NARRATIVE: CASE EVENT DATE: 20220307
